FAERS Safety Report 4275798-6 (Version None)
Quarter: 2004Q1

REPORT INFORMATION
  Report Type: 
  Country: None (occurrence: None)
  Receive Date: 20040121
  Receipt Date: 20040109
  Transmission Date: 20041129
  Serious: Yes (Hospitalization)
  Sender: FDA-Public Use
  Company Number: WAES 0401USA01009

PATIENT
  Age: 12 Month
  Sex: Male

DRUGS (3)
  1. CYCLOPHOSPHAMIDE [Suspect]
     Indication: RHABDOMYOSARCOMA
     Route: 042
     Dates: start: 20021021, end: 20021021
  2. COSMOGEN [Suspect]
     Indication: RHABDOMYOSARCOMA
     Route: 042
     Dates: start: 20021021, end: 20021025
  3. VINCRISTINE SULFATE [Concomitant]
     Indication: RHABDOMYOSARCOMA
     Dates: start: 20021021, end: 20021021

REACTIONS (11)
  - ABDOMINAL DISTENSION [None]
  - ASCITES [None]
  - FLUID RETENTION [None]
  - HEPATOMEGALY [None]
  - HYPERBILIRUBINAEMIA [None]
  - HYPOXIA [None]
  - PLATELET COUNT DECREASED [None]
  - PLEURAL EFFUSION [None]
  - URINE OUTPUT DECREASED [None]
  - VENOOCCLUSIVE DISEASE [None]
  - WEIGHT INCREASED [None]
